FAERS Safety Report 18603039 (Version 4)
Quarter: 2021Q1

REPORT INFORMATION
  Report Type: Spontaneous
  Country: HU (occurrence: HU)
  Receive Date: 20201210
  Receipt Date: 20210112
  Transmission Date: 20210419
  Serious: Yes (Disabling)
  Sender: FDA-Public Use
  Company Number: HU-TOLMAR, INC.-20HU024315

PATIENT
  Age: 77 Year
  Sex: Male
  Weight: 85 kg

DRUGS (13)
  1. AVASTIN [Suspect]
     Active Substance: BEVACIZUMAB
     Indication: NON-SMALL CELL LUNG CANCER
     Dosage: UNK, EVERY THREE WEEKS
     Route: 042
     Dates: start: 2016, end: 2019
  2. AVASTIN [Suspect]
     Active Substance: BEVACIZUMAB
     Indication: LUNG NEOPLASM MALIGNANT
     Dosage: UNK, EVERY FOUR WEEKS
     Route: 042
     Dates: start: 2019
  3. VITAMIN C [Concomitant]
     Active Substance: ASCORBIC ACID
     Indication: PRODUCT USED FOR UNKNOWN INDICATION
     Route: 065
  4. OSPORIL [Suspect]
     Active Substance: ZOLEDRONIC ACID
     Indication: PROSTATE CANCER
     Dosage: UNK; EVERY THREE WEEKS
     Route: 065
     Dates: start: 2019
  5. OSPORIL [Suspect]
     Active Substance: ZOLEDRONIC ACID
     Dosage: UNK; EVERY FOUR WEEKS
     Route: 065
     Dates: start: 2019
  6. XGEVA [Suspect]
     Active Substance: DENOSUMAB
     Indication: METASTASES TO BONE
     Dosage: UNK, EVERY THREE WEEKS
     Route: 065
     Dates: end: 2019
  7. ELIGARD [Suspect]
     Active Substance: LEUPROLIDE ACETATE
     Dosage: UNK, EVERY 4 WEEKS
     Route: 065
     Dates: end: 2019
  8. XGEVA [Suspect]
     Active Substance: DENOSUMAB
     Dosage: UNK, EVERY FOUR WEEKS
     Route: 065
     Dates: start: 2019
  9. ELIGARD [Suspect]
     Active Substance: LEUPROLIDE ACETATE
     Indication: PROSTATE CANCER
     Dosage: UNK, EVERY 4 WEEKS
     Route: 065
     Dates: start: 2019
  10. AVASTIN [Suspect]
     Active Substance: BEVACIZUMAB
     Indication: METASTASES TO LUNG
  11. CLEXAN [Concomitant]
     Active Substance: ENOXAPARIN SODIUM
     Indication: PRODUCT USED FOR UNKNOWN INDICATION
     Dosage: UNK
     Route: 065
  12. RUTASCORBIN [Concomitant]
     Indication: PRODUCT USED FOR UNKNOWN INDICATION
     Route: 065
  13. ELIGARD [Suspect]
     Active Substance: LEUPROLIDE ACETATE
     Dosage: UNK, EVERY 3 WEEKS
     Route: 065
     Dates: end: 2019

REACTIONS (8)
  - Oncocytoma [Not Recovered/Not Resolved]
  - Fatigue [Not Recovered/Not Resolved]
  - Spinal deformity [Not Recovered/Not Resolved]
  - Muscular weakness [Not Recovered/Not Resolved]
  - Off label use [Unknown]
  - Prostate cancer [Not Recovered/Not Resolved]
  - Cardiac disorder [Not Recovered/Not Resolved]
  - Prostatic disorder [Not Recovered/Not Resolved]
